FAERS Safety Report 4718485-X (Version None)
Quarter: 2005Q3

REPORT INFORMATION
  Report Type: 
  Country: None (occurrence: None)
  Receive Date: 20050720
  Receipt Date: 20041221
  Transmission Date: 20060218
  Serious: Yes (Hospitalization, Other)
  Sender: FDA-Public Use
  Company Number: PHEH2004US13560

PATIENT
  Age: 28 Year
  Sex: Female

DRUGS (3)
  1. TRILEPTAL [Suspect]
     Indication: BIPOLAR DISORDER
     Dosage: 1200 MG, QD
     Route: 048
     Dates: start: 20040428, end: 20040907
  2. TRILEPTAL [Suspect]
     Dosage: 1050 MG, QD
     Route: 048
  3. TRILEPTAL [Suspect]
     Route: 048
     Dates: start: 20050317

REACTIONS (4)
  - CAESAREAN SECTION [None]
  - DEPRESSION [None]
  - DRUG EXPOSURE DURING PREGNANCY [None]
  - GESTATIONAL DIABETES [None]
